FAERS Safety Report 18691516 (Version 2)
Quarter: 2021Q1

REPORT INFORMATION
  Report Type: Report from Study
  Country: IT (occurrence: IT)
  Receive Date: 20210101
  Receipt Date: 20210108
  Transmission Date: 20210419
  Serious: Yes (Hospitalization)
  Sender: FDA-Public Use
  Company Number: IT-TEVA-667881ACC

PATIENT
  Age: 72 Year
  Sex: Male
  Weight: 69 kg

DRUGS (19)
  1. DEXAMETHASONE. [Suspect]
     Active Substance: DEXAMETHASONE
     Indication: PLASMA CELL MYELOMA
     Route: 048
     Dates: start: 20160509
  2. BENDAMUSTINE HYDROCHLORIDE. [Suspect]
     Active Substance: BENDAMUSTINE HYDROCHLORIDE
     Dosage: (2ND CYCLE)
     Route: 042
  3. DEXAMETHASONE. [Suspect]
     Active Substance: DEXAMETHASONE
     Route: 048
     Dates: start: 20160510
  4. DEXAMETHASONE. [Suspect]
     Active Substance: DEXAMETHASONE
     Route: 048
     Dates: start: 20160523
  5. DEXAMETHASONE. [Suspect]
     Active Substance: DEXAMETHASONE
     Route: 048
     Dates: start: 20160530
  6. BENDAMUSTINE HYDROCHLORIDE. [Suspect]
     Active Substance: BENDAMUSTINE HYDROCHLORIDE
     Indication: PLASMA CELL MYELOMA
     Dosage: 125 MG (70 MG/M2), CYCLIC
     Route: 042
     Dates: start: 20160509, end: 20160516
  7. DEXAMETHASONE. [Suspect]
     Active Substance: DEXAMETHASONE
     Route: 048
     Dates: start: 20160516
  8. DEXAMETHASONE. [Suspect]
     Active Substance: DEXAMETHASONE
     Route: 048
     Dates: start: 20160517
  9. CARFILZOMIB [Suspect]
     Active Substance: CARFILZOMIB
     Indication: PLASMA CELL MYELOMA
     Dosage: 36.5 MG (27 MG/M2), CYCLIC
     Route: 042
     Dates: start: 20160509
  10. CARFILZOMIB [Suspect]
     Active Substance: CARFILZOMIB
     Dosage: 49 MG (36 MG/M2), CYCLIC
     Route: 042
     Dates: start: 20160516
  11. CARFILZOMIB [Suspect]
     Active Substance: CARFILZOMIB
     Dosage: 36.5 MG (27 MG/M2), CYCLIC
     Route: 042
     Dates: start: 20160523
  12. CARFILZOMIB [Suspect]
     Active Substance: CARFILZOMIB
     Dosage: 36.5 MG (27 MG/M2), CYCLIC
     Route: 042
     Dates: start: 20160524
  13. VALACYCLOVIR [Concomitant]
     Active Substance: VALACYCLOVIR HYDROCHLORIDE
     Indication: PRODUCT USED FOR UNKNOWN INDICATION
     Dosage: 500 MILLIGRAM DAILY;
     Route: 048
  14. DEXAMETHASONE. [Suspect]
     Active Substance: DEXAMETHASONE
     Route: 048
     Dates: start: 20160524
  15. DEXAMETHASONE. [Suspect]
     Active Substance: DEXAMETHASONE
     Route: 048
     Dates: start: 20160531
  16. LEVOFLOXACIN. [Concomitant]
     Active Substance: LEVOFLOXACIN
     Indication: PRODUCT USED FOR UNKNOWN INDICATION
     Dosage: 250 MILLIGRAM DAILY;
     Route: 048
  17. PANTOPRAZOLE [Concomitant]
     Active Substance: PANTOPRAZOLE
     Indication: PRODUCT USED FOR UNKNOWN INDICATION
     Dosage: 20 MILLIGRAM DAILY;
     Route: 048
  18. CARFILZOMIB [Suspect]
     Active Substance: CARFILZOMIB
     Dosage: 36.5 MG (27 MG/M2), CYCLIC
     Route: 042
     Dates: start: 20160517
  19. CARFILZOMIB [Suspect]
     Active Substance: CARFILZOMIB
     Dosage: 36.5 MG (27 MG/M2), CYCLIC
     Route: 042
     Dates: start: 20160510

REACTIONS (1)
  - Fungal oesophagitis [Recovered/Resolved]

NARRATIVE: CASE EVENT DATE: 20160531
